FAERS Safety Report 7689405-3 (Version None)
Quarter: 2011Q3

REPORT INFORMATION
  Report Type: 
  Country: None (occurrence: None)
  Receive Date: 20110817
  Receipt Date: 20110809
  Transmission Date: 20111222
  Serious: Yes (Other)
  Sender: FDA-Public Use
  Company Number: PHHY2010BR42545

PATIENT
  Age: 35 Year
  Sex: Female

DRUGS (4)
  1. DESERILA [Suspect]
     Dosage: 1 DF, TID
     Route: 048
  2. CLONAZEPAM [Concomitant]
     Indication: AGITATION
  3. CLONAZEPAM [Concomitant]
     Indication: NERVOUSNESS
     Dosage: 3 DF, ONE TABLET IN THE MORNING, TWO TABLETS IN A SINGLE DOSE AT NIGHT
     Route: 048
  4. CLONAZEPAM [Concomitant]
     Indication: HEADACHE

REACTIONS (8)
  - FEAR [None]
  - VISUAL ACUITY REDUCED TRANSIENTLY [None]
  - MIGRAINE [None]
  - HEADACHE [None]
  - BLINDNESS [None]
  - PANIC REACTION [None]
  - FEELING OF DESPAIR [None]
  - FEELING ABNORMAL [None]
